FAERS Safety Report 7345064-0 (Version None)
Quarter: 2011Q1

REPORT INFORMATION
  Report Type: 
  Country: None (occurrence: None)
  Receive Date: 20110310
  Receipt Date: 20110228
  Transmission Date: 20110831
  Serious: Yes (Hospitalization)
  Sender: FDA-Public Use
  Company Number: US-ELI_LILLY_AND_COMPANY-US201101001329

PATIENT
  Sex: Female
  Weight: 44.444 kg

DRUGS (13)
  1. FORTEO [Suspect]
     Indication: OSTEOPOROSIS
     Dosage: 20 UG, DAILY (1/D)
     Dates: start: 20101111
  2. DILTIAZEM [Concomitant]
     Dosage: 120 MG, 3/D
     Route: 065
  3. ALBUTEROL [Concomitant]
     Dosage: 1 D/F, 4/D
     Route: 055
  4. CENTRUM SILVER [Concomitant]
     Dosage: 1 D/F, DAILY (1/D)
     Route: 065
  5. FORTEO [Suspect]
     Dosage: 20 UG, DAILY (1/D)
     Dates: start: 20040101
  6. ASPIRIN [Concomitant]
     Dosage: 325 MG, DAILY (1/D)
     Route: 065
  7. LORATADINE [Concomitant]
     Dosage: 10 MG, DAILY (1/D)
     Route: 065
  8. PULMICORT [Concomitant]
     Route: 055
  9. FISH OIL [Concomitant]
     Dosage: 1000 MG, DAILY (1/D)
     Route: 065
  10. MUCINEX [Concomitant]
     Dosage: 600 MG, 2/D
     Route: 065
  11. SINGULAIR [Concomitant]
     Dosage: 10 MG, DAILY (1/D)
     Route: 065
  12. ZOCOR [Concomitant]
     Dosage: 40 MG, DAILY (1/D)
     Route: 065
  13. XANAX [Concomitant]
     Dosage: 0.25 MG, 3/D
     Route: 065

REACTIONS (7)
  - PNEUMONIA [None]
  - SNEEZING [None]
  - PULMONARY CONGESTION [None]
  - ARTHRALGIA [None]
  - UPPER RESPIRATORY TRACT INFECTION [None]
  - RHINORRHOEA [None]
  - INAPPROPRIATE SCHEDULE OF DRUG ADMINISTRATION [None]
